FAERS Safety Report 15586719 (Version 1)
Quarter: 2018Q4

REPORT INFORMATION
  Report Type: Spontaneous
  Country: DE (occurrence: DE)
  Receive Date: 20181105
  Receipt Date: 20181105
  Transmission Date: 20190205
  Serious: Yes (Hospitalization)
  Sender: FDA-Public Use
  Company Number: DE-BAYER-RCH-92895

PATIENT
  Age: 82 Year
  Sex: Female

DRUGS (10)
  1. KALINOR-BRAUSETABLETTEN [Suspect]
     Active Substance: POTASSIUM CARBONATE\POTASSIUM CITRATE
     Indication: CARDIAC FAILURE
     Route: 048
     Dates: start: 19941017, end: 19941021
  2. LIQUEMIN [Suspect]
     Active Substance: HEPARIN SODIUM
     Indication: THROMBOSIS PROPHYLAXIS
     Dosage: 15000 (DAILY DOSE), , SUBCUTANEOUS
     Route: 058
     Dates: start: 19941017, end: 19941021
  3. BACTRIM [Suspect]
     Active Substance: SULFAMETHOXAZOLE\TRIMETHOPRIM
     Indication: PNEUMONIA
     Dosage: 1 DF, UNK
     Route: 048
     Dates: start: 19941020, end: 19941021
  4. ASPIRIN 100 MG [Suspect]
     Active Substance: ASPIRIN
     Indication: CARDIAC FAILURE
     Route: 048
     Dates: end: 19941021
  5. LACTUFLOR [Suspect]
     Active Substance: LACTULOSE
     Indication: CONSTIPATION
     Dosage: 2 DF, QD
     Route: 048
     Dates: start: 19941020, end: 19941021
  6. ISMO [Suspect]
     Active Substance: ISOSORBIDE MONONITRATE
     Indication: CARDIAC FAILURE
     Route: 048
     Dates: start: 19941017, end: 19941021
  7. DULCOLAX (BISACODYL) [Suspect]
     Active Substance: BISACODYL
     Indication: CONSTIPATION
     Route: 054
     Dates: start: 19941019, end: 19941019
  8. KALINOR-BRAUSETABLETTEN [Suspect]
     Active Substance: POTASSIUM CARBONATE\POTASSIUM CITRATE
     Indication: CARDIAC FAILURE
     Dosage: UNK
     Route: 048
  9. LASIX [Suspect]
     Active Substance: FUROSEMIDE
     Indication: FLUID RETENTION
     Route: 048
     Dates: start: 19941018, end: 19941021
  10. BACTRIM [Suspect]
     Active Substance: SULFAMETHOXAZOLE\TRIMETHOPRIM
     Indication: PNEUMONIA
     Dosage: 1 DF, UNK
     Route: 048
     Dates: start: 19941020, end: 19941021

REACTIONS (1)
  - Stevens-Johnson syndrome [Recovering/Resolving]

NARRATIVE: CASE EVENT DATE: 19941021
